FAERS Safety Report 16967653 (Version 1)
Quarter: 2019Q4

REPORT INFORMATION
  Report Type: Spontaneous
  Country: CA (occurrence: CA)
  Receive Date: 20191028
  Receipt Date: 20191028
  Transmission Date: 20200122
  Serious: Yes (Other)
  Sender: FDA-Public Use
  Company Number: CA-TEVA-2019-CA-1126955

PATIENT
  Age: 24 Year
  Sex: Female

DRUGS (42)
  1. MEDROXYPROGESTERONE ACETATE. [Suspect]
     Active Substance: MEDROXYPROGESTERONE ACETATE
     Route: 065
  2. MEDROXYPROGESTERONE ACETATE. [Suspect]
     Active Substance: MEDROXYPROGESTERONE ACETATE
     Route: 065
  3. MEDROXYPROGESTERONE ACETATE. [Suspect]
     Active Substance: MEDROXYPROGESTERONE ACETATE
     Route: 065
  4. MEDROXYPROGESTERONE ACETATE. [Suspect]
     Active Substance: MEDROXYPROGESTERONE ACETATE
     Route: 065
  5. MEDROXYPROGESTERONE ACETATE. [Suspect]
     Active Substance: MEDROXYPROGESTERONE ACETATE
     Route: 065
  6. ATIVAN [Concomitant]
     Active Substance: LORAZEPAM
  7. BENZOYL PEROXIDE W/CLINDAMYCIN PHOSPHATE [Concomitant]
  8. BETAMETHASONE VALERATE. [Concomitant]
     Active Substance: BETAMETHASONE VALERATE
  9. NOVO-LEXIN [Concomitant]
     Active Substance: CEPHALEXIN
  10. PENICILLIN V POTASSIUM. [Concomitant]
     Active Substance: PENICILLIN V POTASSIUM
  11. MEDROXYPROGESTERONE ACETATE. [Suspect]
     Active Substance: MEDROXYPROGESTERONE ACETATE
     Indication: PRODUCT USED FOR UNKNOWN INDICATION
     Route: 065
  12. MEDROXYPROGESTERONE ACETATE. [Suspect]
     Active Substance: MEDROXYPROGESTERONE ACETATE
     Route: 065
  13. CIPRO [Concomitant]
     Active Substance: CIPROFLOXACIN HYDROCHLORIDE
  14. NORETHINDRONE. [Concomitant]
     Active Substance: NORETHINDRONE
  15. MEDROXYPROGESTERONE ACETATE. [Suspect]
     Active Substance: MEDROXYPROGESTERONE ACETATE
     Route: 065
  16. APO-AMOXI [Concomitant]
     Active Substance: AMOXICILLIN
  17. MIRENA [Concomitant]
     Active Substance: LEVONORGESTREL
     Dosage: 20 MICROGRAM DAILY;
  18. RATIO-CYCLOBENZAPRINE [Concomitant]
  19. CIPROFLOXACIN HYDROCHLORIDE. [Concomitant]
     Active Substance: CIPROFLOXACIN HYDROCHLORIDE
  20. LAMISIL [Concomitant]
     Active Substance: TERBINAFINE HYDROCHLORIDE
  21. NAPROXEN. [Concomitant]
     Active Substance: NAPROXEN
  22. TEGASEROD MALEATE [Concomitant]
     Active Substance: TEGASEROD MALEATE
  23. PROPRANOLOL [Concomitant]
     Active Substance: PROPRANOLOL HYDROCHLORIDE
  24. MEDROXYPROGESTERONE ACETATE. [Suspect]
     Active Substance: MEDROXYPROGESTERONE ACETATE
     Route: 065
  25. CIPROFLOXACIN HYDROCHLORIDE. [Concomitant]
     Active Substance: CIPROFLOXACIN HYDROCHLORIDE
  26. CLINDAMYCIN PHOSPHATE. [Concomitant]
     Active Substance: CLINDAMYCIN PHOSPHATE
  27. MACROBID [CLARITHROMYCIN] [Concomitant]
     Active Substance: CLARITHROMYCIN
  28. MISOPROSTOL. [Concomitant]
     Active Substance: MISOPROSTOL
  29. NORFLOXACIN [Concomitant]
     Active Substance: NORFLOXACIN
  30. MEDROXYPROGESTERONE ACETATE. [Suspect]
     Active Substance: MEDROXYPROGESTERONE ACETATE
     Route: 065
  31. DESOGESTREL/ETHINYL ESTRADIOL [Concomitant]
     Active Substance: DESOGESTREL\ETHINYL ESTRADIOL
  32. HEPATITIS A VACCINE INACT [Concomitant]
  33. PMS-FLUCONAZOLE [Concomitant]
  34. AMOXICILLIN. [Concomitant]
     Active Substance: AMOXICILLIN
  35. AMOXICILLIN AND CLAVULANATE POTASSIUM [Concomitant]
     Active Substance: AMOXICILLIN\CLAVULANATE POTASSIUM
  36. ORACORT [PREDNISONE] [Concomitant]
  37. MEDROXYPROGESTERONE ACETATE. [Suspect]
     Active Substance: MEDROXYPROGESTERONE ACETATE
     Indication: PRODUCT USED FOR UNKNOWN INDICATION
     Route: 065
  38. MEDROXYPROGESTERONE ACETATE. [Suspect]
     Active Substance: MEDROXYPROGESTERONE ACETATE
     Route: 065
  39. MEDROXYPROGESTERONE ACETATE. [Suspect]
     Active Substance: MEDROXYPROGESTERONE ACETATE
     Route: 065
  40. MEDROXYPROGESTERONE ACETATE. [Suspect]
     Active Substance: MEDROXYPROGESTERONE ACETATE
     Route: 065
  41. NOVAMOXIN [Concomitant]
     Active Substance: AMOXICILLIN
  42. PLAN B [Concomitant]
     Active Substance: LEVONORGESTREL

REACTIONS (1)
  - Femoral neck fracture [Unknown]
